FAERS Safety Report 8574130-7 (Version None)
Quarter: 2012Q3

REPORT INFORMATION
  Report Type: 
  Country: None (occurrence: None)
  Receive Date: 20120806
  Receipt Date: 20120802
  Transmission Date: 20120928
  Serious: Yes (Hospitalization, Other)
  Sender: FDA-Public Use
  Company Number: PHEH2012US013167

PATIENT
  Age: 52 Year
  Sex: Male

DRUGS (2)
  1. CLOZAPINE [Suspect]
  2. CLOZARIL [Suspect]

REACTIONS (1)
  - PSYCHOTIC DISORDER [None]
